FAERS Safety Report 8573176-2 (Version None)
Quarter: 2012Q3

REPORT INFORMATION
  Report Type: 
  Country: None (occurrence: None)
  Receive Date: 20120806
  Receipt Date: 20120730
  Transmission Date: 20120928
  Serious: Yes (Other)
  Sender: FDA-Public Use
  Company Number: US-PFIZER INC-2009224718

PATIENT
  Age: 61 Year
  Sex: Male

DRUGS (50)
  1. OXYCONTIN [Concomitant]
     Dosage: UNK
     Dates: end: 20090412
  2. ZYVOX [Concomitant]
     Dosage: UNK
     Dates: end: 20090319
  3. HANP [Concomitant]
     Dosage: UNK
     Dates: start: 20090322, end: 20090325
  4. CARBENIN [Concomitant]
     Dosage: UNK
     Dates: start: 20090330, end: 20090406
  5. LOXOPROFEN SODIUM [Concomitant]
     Dosage: UNK
     Dates: start: 20090518
  6. MECOBALAMIN [Concomitant]
     Indication: HYPOAESTHESIA
     Dosage: UNK
     Dates: start: 20090506
  7. MECOBALAMIN [Concomitant]
     Dosage: UNK
     Dates: start: 20090506
  8. ETIZOLAM [Concomitant]
     Dosage: UNK
     Dates: start: 20090509
  9. ALPRAZOLAM [Concomitant]
     Dosage: UNK
     Dates: start: 20080520
  10. BROTIZOLAM [Concomitant]
     Indication: INSOMNIA
     Dosage: UNK
  11. FUROSEMIDE [Concomitant]
     Indication: POLYURIA
     Dosage: 40 MG, UNK
     Dates: start: 20090406, end: 20090412
  12. PANIPENEM [Concomitant]
     Indication: SEPSIS
     Dosage: UNK
  13. OXYCODONE HYDROCHLORIDE [Concomitant]
     Dosage: UNK
     Dates: start: 20090101, end: 20090409
  14. BISOPROLOL FUMARATE [Concomitant]
  15. FULCALIQ [Concomitant]
     Dosage: UNK
     Dates: end: 20090330
  16. LASIX [Concomitant]
     Dosage: UNK
     Dates: end: 20090402
  17. RISPERDAL [Concomitant]
     Dosage: UNK
     Dates: start: 20090421
  18. DOMPERIDONE [Concomitant]
     Dosage: UNK
     Dates: start: 20090515
  19. SULBACTAM SODIUM [Suspect]
     Route: 042
  20. TARGOCID [Suspect]
     Indication: STAPHYLOCOCCAL SEPSIS
     Dosage: UNK
     Route: 042
     Dates: start: 20090320
  21. MAGNESIUM OXIDE [Concomitant]
  22. OLOPATADINE HYDROCHLORIDE [Concomitant]
     Dosage: UNK
     Dates: end: 20090408
  23. SODIUM PICOSULFATE [Concomitant]
     Indication: CONSTIPATION
     Dosage: UNK
     Dates: start: 20090430
  24. CLINDAMYCIN PHOSPHATE [Concomitant]
     Indication: SEPSIS
     Dosage: UNK
  25. CARPERITIDE [Concomitant]
     Indication: CARDIAC FAILURE
     Dosage: UNK
  26. BETAMIPRON [Concomitant]
     Indication: SEPSIS
     Dosage: UNK
  27. SULFAMETHOXAZOLE AND TRIMETHOPRIM [Concomitant]
     Dosage: 1 TABLET/DAY
     Dates: end: 20090408
  28. BACTRIM [Concomitant]
     Dosage: UNK
     Dates: end: 20090408
  29. LASIX [Concomitant]
     Dosage: UNK
     Dates: end: 20090518
  30. URSO 250 [Concomitant]
     Dosage: UNK
  31. TEICOPLANIN [Concomitant]
     Indication: STAPHYLOCOCCAL SEPSIS
     Dosage: UNK
  32. FUROSEMIDE [Concomitant]
     Dosage: 20 MG, UNK
     Dates: start: 20090417, end: 20090518
  33. PREDNISOLONE [Concomitant]
     Dosage: UNK
     Dates: start: 20090316, end: 20090406
  34. SALINE [Concomitant]
     Dosage: UNK
     Dates: start: 20080428
  35. FAMOTIDINE [Concomitant]
     Indication: GASTRITIS PROPHYLAXIS
     Dosage: UNK
     Dates: start: 20090501
  36. FAMOTIDINE [Concomitant]
     Dosage: UNK
     Dates: end: 20090501
  37. PANTOSIN [Concomitant]
  38. LENDORMIN [Concomitant]
  39. HYDROCORTISONE SODIUM SUCCINATE [Concomitant]
  40. ACETAMINOPHEN [Concomitant]
     Dosage: UNK
  41. LEVOFLOXACIN [Concomitant]
     Indication: INFECTION
     Dosage: UNK
     Dates: start: 20090506
  42. TRAZODONE HYDROCHLORIDE [Concomitant]
     Dosage: UNK
     Dates: start: 20090513
  43. URSODEOXYCHOLIC ACID [Concomitant]
     Dosage: UNK
  44. SPIRONOLACTONE [Concomitant]
     Indication: POLYURIA
     Dosage: UNK
     Dates: start: 20090430, end: 20090510
  45. LINEZOLID [Concomitant]
     Indication: STAPHYLOCOCCAL SEPSIS
     Dosage: UNK
  46. FUROSEMIDE [Concomitant]
     Indication: CARDIAC FAILURE
     Dosage: 20 MG, UNK
     Dates: end: 20090402
  47. BISOPROLOL FUMARATE [Concomitant]
     Indication: CARDIAC FAILURE
     Dosage: UNK
  48. ARMODAFINIL [Suspect]
     Dosage: 100 MG, 1X/DAY
     Route: 048
     Dates: end: 20090408
  49. CLINDAMYCIN [Concomitant]
     Dosage: UNK
     Dates: end: 20090316
  50. RISPERIDONE [Concomitant]
     Indication: INSOMNIA
     Dosage: UNK

REACTIONS (1)
  - BLOOD BILIRUBIN INCREASED [None]
